FAERS Safety Report 8756112 (Version 4)
Quarter: 2012Q4

REPORT INFORMATION
  Report Type: 
  Country: US (occurrence: US)
  Receive Date: 20120828
  Receipt Date: 20121029
  Transmission Date: 20130627
  Serious: No
  Sender: FDA-Public Use
  Company Number: US-PFIZER INC-2012206442

PATIENT
  Age: 59 Year
  Sex: Female
  Weight: 63.49 kg

DRUGS (11)
  1. SUTENT [Suspect]
     Indication: RENAL CELL CARCINOMA
     Dosage: 50 mg, daily,cyclic
     Route: 048
     Dates: start: 201207, end: 20120821
  2. NORVASC [Concomitant]
     Dosage: UNK
  3. SYNTHROID [Concomitant]
     Indication: THYROID DISORDER
     Dosage: 25 ug, daily
  4. ZOCOR [Concomitant]
     Indication: BLOOD CHOLESTEROL ABNORMAL
     Dosage: 40 mg, daily
  5. PRILOSEC [Concomitant]
     Dosage: UNK
  6. LEVOXYL [Concomitant]
  7. VICODIN [Concomitant]
     Indication: PAIN IN FOOT
     Dosage: 5 mg, as needed
  8. VITAMIN B6 [Concomitant]
  9. LOPERAMIDE HYDROCHLORIDE [Concomitant]
     Indication: DIARRHEA
     Dosage: UNK
  10. CELEBREX [Concomitant]
  11. NEURONTIN [Concomitant]

REACTIONS (12)
  - Blood pressure increased [Recovered/Resolved]
  - Thyroid function test abnormal [Unknown]
  - Dry skin [Not Recovered/Not Resolved]
  - Skin fissures [Recovered/Resolved]
  - Pain in extremity [Not Recovered/Not Resolved]
  - Skin exfoliation [Not Recovered/Not Resolved]
  - Blister [Recovered/Resolved]
  - Palmar-plantar erythrodysaesthesia syndrome [Not Recovered/Not Resolved]
  - Diarrhoea [Unknown]
  - Burning sensation [Not Recovered/Not Resolved]
  - Hyperaesthesia [Unknown]
  - Weight decreased [Unknown]
